FAERS Safety Report 14003244 (Version 1)
Quarter: 2017Q3

REPORT INFORMATION
  Report Type: Spontaneous
  Country: ES (occurrence: ES)
  Receive Date: 20170922
  Receipt Date: 20170922
  Transmission Date: 20171128
  Serious: Yes (Other)
  Sender: FDA-Public Use
  Company Number: ES-GILEAD-2017-0267413

PATIENT
  Age: 50 Year
  Sex: Male

DRUGS (10)
  1. SPIRONOLACTONE. [Concomitant]
     Active Substance: SPIRONOLACTONE
  2. PALIPERIDONE. [Concomitant]
     Active Substance: PALIPERIDONE
  3. RIBAVIRIN. [Suspect]
     Active Substance: RIBAVIRIN
     Indication: HEPATITIS C
     Dosage: UNK
     Route: 065
  4. AMISULPRIDE [Concomitant]
     Active Substance: AMISULPRIDE
  5. ANTABUS [Concomitant]
     Active Substance: DISULFIRAM
  6. FLUOXETINE [Concomitant]
     Active Substance: FLUOXETINE HYDROCHLORIDE
  7. OMEPRAZOLE. [Concomitant]
     Active Substance: OMEPRAZOLE
  8. HARVONI [Suspect]
     Active Substance: LEDIPASVIR\SOFOSBUVIR
     Indication: HEPATITIS C
     Dosage: UNK
     Route: 065
  9. PREGABALIN. [Concomitant]
     Active Substance: PREGABALIN
  10. AKINETON [Concomitant]
     Active Substance: BIPERIDEN HYDROCHLORIDE

REACTIONS (4)
  - Hepatocellular carcinoma [Unknown]
  - Treatment failure [Unknown]
  - Hepatitis C [Unknown]
  - Drug ineffective [Unknown]
